FAERS Safety Report 9536378 (Version 1)
Quarter: 2013Q2

REPORT INFORMATION
  Report Type: Spontaneous
  Country: US (occurrence: None)
  Receive Date: 20130507
  Receipt Date: 20130507
  Transmission Date: 20140414
  Serious: Yes (Other)
  Sender: FDA-Public Use
  Company Number: PHEH2012US023890

PATIENT
  Age: 67 Year
  Sex: Male
  Weight: 135.5 kg

DRUGS (2)
  1. AFINITOR (RAD) [Suspect]
     Indication: CARCINOID TUMOUR PULMONARY
     Route: 048
     Dates: end: 20121220
  2. AFINITOR (RAD) [Suspect]
     Indication: METASTATIC CARCINOID TUMOUR
     Route: 048
     Dates: end: 20121220

REACTIONS (5)
  - Platelet count decreased [None]
  - Blood glucose increased [None]
  - Lung neoplasm malignant [None]
  - Malignant neoplasm progression [None]
  - Dyspnoea [None]
